FAERS Safety Report 17952222 (Version 4)
Quarter: 2021Q4

REPORT INFORMATION
  Report Type: Spontaneous
  Country: US (occurrence: US)
  Receive Date: 20200626
  Receipt Date: 20211025
  Transmission Date: 20220303
  Serious: Yes (Hospitalization, Other)
  Sender: FDA-Public Use
  Company Number: US-INCYTE CORPORATION-2020IN005985

PATIENT

DRUGS (8)
  1. JAKAFI [Suspect]
     Active Substance: RUXOLITINIB
     Indication: Polycythaemia vera
     Dosage: 5 MG (2 TABLETS), QAM AND 5 MG (1 TABLET), QPM
     Route: 048
     Dates: start: 20180605
  2. JAKAFI [Suspect]
     Active Substance: RUXOLITINIB
     Dosage: 5 MILLIGRAM (2 TABLETS QAM AND 1 TAB QPM), 12 HOURS APART
     Route: 048
     Dates: start: 20180605
  3. JAKAFI [Suspect]
     Active Substance: RUXOLITINIB
     Dosage: 5 MILLIGRAM (2 TABLETS QAM AND 1 TAB QPM)
     Route: 048
     Dates: start: 20180605
  4. JAKAFI [Suspect]
     Active Substance: RUXOLITINIB
     Dosage: 5 MILLIGRAM, BID
     Route: 048
     Dates: start: 201808
  5. JAKAFI [Suspect]
     Active Substance: RUXOLITINIB
     Dosage: 10MG (TWO 5 MG TABLETS) QAM, 5MG QPM, 12 HRS APART
     Route: 048
     Dates: start: 20180605
  6. FUROSEMIDE [Concomitant]
     Active Substance: FUROSEMIDE
     Indication: Product used for unknown indication
     Dosage: 40 MILLIGRAM
     Route: 065
  7. NITROFURANTOIN [Concomitant]
     Active Substance: NITROFURANTOIN
     Indication: Product used for unknown indication
     Dosage: 100 MILLIGRAM
     Route: 065
  8. METOLAZONE [Concomitant]
     Active Substance: METOLAZONE
     Indication: Product used for unknown indication
     Dosage: 2.5 MILLIGRAM
     Route: 065

REACTIONS (9)
  - Haemorrhage [Unknown]
  - Ligament rupture [Unknown]
  - Splenomegaly [Unknown]
  - Blood disorder [Unknown]
  - Accident [Unknown]
  - Limb discomfort [Unknown]
  - Muscular weakness [Unknown]
  - Peripheral arterial occlusive disease [Unknown]
  - Dyspnoea [Unknown]
